FAERS Safety Report 21024723 (Version 1)
Quarter: 2022Q2

REPORT INFORMATION
  Report Type: Spontaneous
  Country: JP (occurrence: JP)
  Receive Date: 20220629
  Receipt Date: 20220629
  Transmission Date: 20220721
  Serious: Yes (Hospitalization)
  Sender: FDA-Public Use
  Company Number: JP-Eisai-202203745_LEN-TMC_P_1

PATIENT
  Age: 35 Year
  Sex: Female

DRUGS (1)
  1. LENVIMA [Suspect]
     Active Substance: LENVATINIB
     Indication: Thymic carcinoma
     Route: 048
     Dates: start: 20220613, end: 20220620

REACTIONS (1)
  - Cholecystitis [Unknown]

NARRATIVE: CASE EVENT DATE: 20220621
